FAERS Safety Report 17665299 (Version 1)
Quarter: 2020Q2

REPORT INFORMATION
  Report Type: Spontaneous
  Country: FR (occurrence: FR)
  Receive Date: 20200414
  Receipt Date: 20200414
  Transmission Date: 20200713
  Serious: Yes (Hospitalization)
  Sender: FDA-Public Use
  Company Number: NVSC2020FR099137

PATIENT
  Age: 38 Year
  Sex: Female
  Weight: 110 kg

DRUGS (7)
  1. PARACETAMOL [Suspect]
     Active Substance: ACETAMINOPHEN
     Indication: PAIN
     Dosage: UNK
     Route: 065
     Dates: start: 20191210, end: 20191213
  2. LOVENOX [Concomitant]
     Active Substance: ENOXAPARIN SODIUM
     Indication: THROMBOSIS PROPHYLAXIS
     Dosage: 6000 IU, QD
     Route: 058
     Dates: start: 20191210, end: 20191216
  3. ACUPAN [Concomitant]
     Active Substance: NEFOPAM HYDROCHLORIDE
     Indication: PAIN
     Dosage: 20 MG, Q6H
     Route: 065
     Dates: start: 20191210, end: 20191217
  4. DIFFU K [Concomitant]
     Active Substance: POTASSIUM CHLORIDE
     Indication: PRODUCT USED FOR UNKNOWN INDICATION
     Dosage: 1200 MG, QD
     Route: 048
     Dates: start: 20191212, end: 20191217
  5. OXYCODONE [Concomitant]
     Active Substance: OXYCODONE
     Dosage: 20 UNK
     Route: 048
     Dates: start: 20191211, end: 20191217
  6. MORPHINE [Concomitant]
     Active Substance: MORPHINE
     Indication: PAIN
     Dosage: INCONNUE
     Route: 042
     Dates: start: 20191210, end: 20191211
  7. OXYCODONE [Concomitant]
     Active Substance: OXYCODONE
     Indication: PAIN
     Dosage: 10 MG, QD
     Route: 065
     Dates: start: 20191211, end: 20191211

REACTIONS (3)
  - Cholestasis [Recovering/Resolving]
  - Abdominal pain upper [Recovered/Resolved]
  - Hepatocellular injury [Recovering/Resolving]

NARRATIVE: CASE EVENT DATE: 20191212
